FAERS Safety Report 5593214-9 (Version None)
Quarter: 2008Q1

REPORT INFORMATION
  Report Type: 
  Country: None (occurrence: None)
  Receive Date: 20080116
  Receipt Date: 20080104
  Transmission Date: 20080703
  Serious: Yes (Other)
  Sender: FDA-Public Use
  Company Number: US-SOLVAY-00208000093

PATIENT
  Age: 46 Year
  Sex: Male
  Weight: 75.5 kg

DRUGS (1)
  1. ANDROGEL [Suspect]
     Indication: BLOOD TESTOSTERONE DECREASED
     Dosage: DAILY DOSE: 5 GRAM(S)
     Route: 062
     Dates: start: 20070101

REACTIONS (2)
  - PLATELET COUNT DECREASED [None]
  - WEIGHT INCREASED [None]
